FAERS Safety Report 5444649-6 (Version None)
Quarter: 2007Q3

REPORT INFORMATION
  Report Type: 
  Country: None (occurrence: None)
  Receive Date: 20070906
  Receipt Date: 20070201
  Transmission Date: 20080115
  Serious: No
  Sender: FDA-Public Use
  Company Number: A0635692A

PATIENT
  Age: 57 Year
  Sex: Female
  Weight: 65.9 kg

DRUGS (3)
  1. REQUIP [Suspect]
     Indication: RESTLESS LEGS SYNDROME
     Route: 048
     Dates: start: 20060501
  2. FOSAMAX [Concomitant]
  3. ZETIA [Concomitant]

REACTIONS (1)
  - RESTLESS LEGS SYNDROME [None]
